FAERS Safety Report 16829248 (Version 1)
Quarter: 2019Q3

REPORT INFORMATION
  Report Type: Spontaneous
  Country: US (occurrence: US)
  Receive Date: 20190919
  Receipt Date: 20190919
  Transmission Date: 20191005
  Serious: No
  Sender: FDA-Public Use
  Company Number: US-AMERICAN REGENT INC-20181908

PATIENT
  Age: 27 Year
  Sex: Female

DRUGS (2)
  1. INJECTAFER [Suspect]
     Active Substance: FERRIC CARBOXYMALTOSE
     Indication: PRODUCT USED FOR UNKNOWN INDICATION
     Dosage: UNKNOWN 1 DAYS
     Route: 065
     Dates: start: 20180927, end: 20180927
  2. INJECTAFER [Suspect]
     Active Substance: FERRIC CARBOXYMALTOSE
     Dosage: UNKNOWN
     Route: 065
     Dates: start: 20181004, end: 20181004

REACTIONS (3)
  - Urticaria [Recovered/Resolved]
  - Joint swelling [Unknown]
  - Product quality issue [Unknown]

NARRATIVE: CASE EVENT DATE: 20181004
